FAERS Safety Report 4837369-X (Version None)
Quarter: 2005Q4

REPORT INFORMATION
  Report Type: 
  Country: None (occurrence: None)
  Receive Date: 20051122
  Receipt Date: 20051102
  Transmission Date: 20060501
  Serious: Yes (Other)
  Sender: FDA-Public Use
  Company Number: JP_051108080

PATIENT
  Age: 10 Year
  Sex: Male

DRUGS (1)
  1. SOMATROPIN [Suspect]
     Indication: GROWTH HORMONE DEFICIENCY

REACTIONS (5)
  - ARNOLD-CHIARI MALFORMATION [None]
  - GAIT SPASTIC [None]
  - NEUROLOGICAL SYMPTOM [None]
  - SCOLIOSIS [None]
  - SYRINGOMYELIA [None]
